FAERS Safety Report 5264528-7 (Version None)
Quarter: 2007Q1

REPORT INFORMATION
  Report Type: 
  Country: None (occurrence: None)
  Receive Date: 20070314
  Receipt Date: 20070308
  Transmission Date: 20070707
  Serious: Yes (Death)
  Sender: FDA-Public Use
  Company Number: DE-SANOFI-SYNTHELABO-D01200701581

PATIENT
  Sex: Male
  Weight: 63 kg

DRUGS (9)
  1. CIPRALEX [Concomitant]
  2. TRAMADOL HCL [Concomitant]
     Dosage: AC AND BED
  3. PANTOZOL [Concomitant]
  4. RAMIPRIL [Concomitant]
  5. ASPIRIN [Concomitant]
  6. OXALIPLATIN [Suspect]
     Route: 042
     Dates: start: 20070306, end: 20070306
  7. SR57746 OR PLACEBO [Suspect]
     Route: 048
     Dates: start: 20070306, end: 20070307
  8. LEUCOVORIN CALCIUM [Suspect]
     Route: 042
     Dates: start: 20070306, end: 20070306
  9. FLUOROURACIL [Suspect]
     Dosage: 400 MG/M?, IV BOLUS D1+D2 FOLLOWED BY 5-FU 2400 MG/M? OVER 46-HOUR CONTINUOUS INFUSION.
     Route: 042
     Dates: start: 20070306, end: 20070306

REACTIONS (1)
  - SUDDEN DEATH [None]
